FAERS Safety Report 24358406 (Version 1)
Quarter: 2024Q3

REPORT INFORMATION
  Report Type: Spontaneous
  Country: US (occurrence: None)
  Receive Date: 20240924
  Receipt Date: 20240924
  Transmission Date: 20241017
  Serious: Yes (Hospitalization)
  Sender: Public
  Company Number: None

PATIENT
  Age: 52 Year
  Sex: Female

DRUGS (1)
  1. INLYTA [Suspect]
     Active Substance: AXITINIB
     Indication: Renal cancer stage I
     Dosage: FREQUENCY : DAILY;?
     Route: 048

REACTIONS (5)
  - Fatigue [None]
  - Feeling cold [None]
  - Sinus headache [None]
  - Ear disorder [None]
  - Hypophagia [None]
